FAERS Safety Report 12653237 (Version 1)
Quarter: 2016Q3

REPORT INFORMATION
  Report Type: Spontaneous
  Country: FR (occurrence: FR)
  Receive Date: 20160815
  Receipt Date: 20160815
  Transmission Date: 20161109
  Serious: Yes (Other)
  Sender: FDA-Public Use
  Company Number: FR-ELI_LILLY_AND_COMPANY-FR201608002864

PATIENT
  Sex: Female

DRUGS (4)
  1. FORSTEO [Suspect]
     Active Substance: TERIPARATIDE
     Indication: SPINAL FRACTURE
     Dosage: UNK UNK, UNKNOWN
     Route: 065
     Dates: start: 201602
  2. TAREG [Concomitant]
     Active Substance: VALSARTAN
  3. UVEDOSE [Concomitant]
     Active Substance: CHOLECALCIFEROL
     Dosage: 1 DF, EVERY SIX WEEKS
  4. XANAX [Concomitant]
     Active Substance: ALPRAZOLAM

REACTIONS (4)
  - Eye pain [Unknown]
  - Depressed mood [Unknown]
  - Abasia [Unknown]
  - Off label use [Unknown]
